FAERS Safety Report 6370123-9 (Version None)
Quarter: 2009Q3

REPORT INFORMATION
  Report Type: 
  Country: None (occurrence: None)
  Receive Date: 20090923
  Receipt Date: 20080528
  Transmission Date: 20100115
  Serious: Yes (Other)
  Sender: FDA-Public Use
  Company Number: US-ASTRAZENECA-2006UW20994

PATIENT
  Sex: Female

DRUGS (7)
  1. SEROQUEL [Suspect]
     Route: 048
  2. LEXAPRO [Concomitant]
     Dosage: 10-20MG
     Route: 048
  3. TRAZODONE [Concomitant]
     Dosage: 25-50MG
     Route: 048
  4. CELEXA [Concomitant]
     Dosage: 20-40MG
     Route: 048
  5. DOXEPIN HCL [Concomitant]
     Dosage: 50-100MG
     Route: 048
  6. STELAZINE [Concomitant]
     Route: 048
  7. BUSPAR [Concomitant]
     Route: 048
     Dates: start: 20040804

REACTIONS (1)
  - PANCREATITIS [None]
